FAERS Safety Report 10574296 (Version 2)
Quarter: 2014Q4

REPORT INFORMATION
  Report Type: Spontaneous
  Country: US (occurrence: US)
  Receive Date: 20141110
  Receipt Date: 20141110
  Transmission Date: 20150529
  Serious: No
  Sender: FDA-Public Use
  Company Number: US-GALDERMA-US14002170

PATIENT
  Age: 80 Year
  Sex: Female
  Weight: 66 kg

DRUGS (11)
  1. OMEPRAZOLE. [Concomitant]
     Active Substance: OMEPRAZOLE
     Route: 048
  2. WELCHOL [Concomitant]
     Active Substance: COLESEVELAM HYDROCHLORIDE
     Route: 048
  3. RESTASIS [Concomitant]
     Active Substance: CYCLOSPORINE
     Dosage: 1 DROP EACH EYE
     Route: 047
  4. PRAVASTATIN [Concomitant]
     Active Substance: PRAVASTATIN\PRAVASTATIN SODIUM
     Route: 048
  5. ASPIRIN. [Concomitant]
     Active Substance: ASPIRIN
     Route: 048
  6. FISH OIL [Concomitant]
     Active Substance: FISH OIL
     Route: 048
  7. CLOBEX [Suspect]
     Active Substance: CLOBETASOL PROPIONATE
     Indication: PRURITUS
  8. CLOBEX [Suspect]
     Active Substance: CLOBETASOL PROPIONATE
     Indication: HYPERSENSITIVITY
     Dosage: 0.05%
     Route: 061
     Dates: start: 20140606, end: 20140606
  9. CALCIUM [Concomitant]
     Active Substance: CALCIUM
  10. CLOBEX [Suspect]
     Active Substance: CLOBETASOL PROPIONATE
     Indication: SKIN SWELLING
  11. CLOBEX [Suspect]
     Active Substance: CLOBETASOL PROPIONATE
     Indication: ERYTHEMA

REACTIONS (3)
  - Skin discolouration [Recovered/Resolved]
  - Product use issue [Recovered/Resolved]
  - Skin hypopigmentation [Recovered/Resolved]

NARRATIVE: CASE EVENT DATE: 20140606
